FAERS Safety Report 10599619 (Version 1)
Quarter: 2014Q4

REPORT INFORMATION
  Report Type: Spontaneous
  Country: IL (occurrence: PT)
  Receive Date: 20141121
  Receipt Date: 20141121
  Transmission Date: 20150529
  Serious: Yes (Other)
  Sender: FDA-Public Use
  Company Number: IL-ABBVIE-14P-082-1309609-00

PATIENT

DRUGS (1)
  1. HUMIRA [Suspect]
     Active Substance: ADALIMUMAB
     Indication: INFLAMMATORY BOWEL DISEASE
     Route: 065

REACTIONS (5)
  - Arthralgia [Recovered/Resolved]
  - Swelling [Recovered/Resolved]
  - Antinuclear antibody increased [Recovered/Resolved]
  - Arthritis [Recovered/Resolved]
  - Lupus-like syndrome [Recovered/Resolved]
